FAERS Safety Report 9672186 (Version 1)
Quarter: 2013Q4

REPORT INFORMATION
  Report Type: Report from Study
  Country: BR (occurrence: BR)
  Receive Date: 20131106
  Receipt Date: 20131106
  Transmission Date: 20140711
  Serious: Yes (Other)
  Sender: FDA-Public Use
  Company Number: PHHY2013BR124912

PATIENT
  Age: 46 Year
  Sex: Female
  Weight: 46 kg

DRUGS (4)
  1. ACLASTA [Suspect]
     Indication: OSTEOPOROSIS
     Dosage: 5 MG PER 100 ML (YEARLY)
     Route: 042
     Dates: start: 20131016
  2. OSCAL D [Concomitant]
     Indication: VITAMIN D DEFICIENCY
     Dosage: UNK
     Route: 048
     Dates: start: 20130910
  3. AZATHIOPRINE [Concomitant]
     Dosage: UNK
     Route: 048
     Dates: start: 20130802
  4. VITAMIN D [Concomitant]
     Dosage: UNK
     Route: 048
     Dates: start: 20130910

REACTIONS (6)
  - Spinal pain [Recovered/Resolved]
  - Toothache [Recovered/Resolved]
  - Pyrexia [Recovered/Resolved]
  - Headache [Recovered/Resolved]
  - Arthralgia [Recovered/Resolved]
  - Pain in extremity [Recovered/Resolved]
